FAERS Safety Report 4443677-7 (Version None)
Quarter: 2004Q3

REPORT INFORMATION
  Report Type: 
  Country: None (occurrence: None)
  Receive Date: 20040908
  Receipt Date: 20040906
  Transmission Date: 20050211
  Serious: Yes (Hospitalization)
  Sender: FDA-Public Use
  Company Number: DE-GLAXOSMITHKLINE-D0044619A

PATIENT
  Age: 79 Year
  Sex: Male

DRUGS (1)
  1. QUILONUM RETARD [Suspect]
     Route: 065
     Dates: start: 19800101

REACTIONS (1)
  - MUSCULAR WEAKNESS [None]
